FAERS Safety Report 6437443-0 (Version None)
Quarter: 2009Q4

REPORT INFORMATION
  Report Type: 
  Country: None (occurrence: None)
  Receive Date: 20091112
  Receipt Date: 20091104
  Transmission Date: 20100525
  Serious: Yes (Hospitalization, Other)
  Sender: FDA-Public Use
  Company Number: US-BAYER-200916274BCC

PATIENT
  Age: 19 Year
  Sex: Female
  Weight: 73 kg

DRUGS (1)
  1. EXTRA STRENGTH BAYER BACK + BODY ASPIRIN [Suspect]
     Indication: SELF INJURIOUS BEHAVIOUR
     Dosage: TOOK ABOUT 35 TABLETS
     Route: 048
     Dates: start: 20091102

REACTIONS (2)
  - FATIGUE [None]
  - VOMITING [None]
